FAERS Safety Report 4281170-5 (Version None)
Quarter: 2004Q1

REPORT INFORMATION
  Report Type: 
  Country: None (occurrence: None)
  Receive Date: 20040116
  Receipt Date: 20031125
  Transmission Date: 20041129
  Serious: No
  Sender: FDA-Public Use
  Company Number: HQWYE371902DEC03

PATIENT
  Sex: Female

DRUGS (1)
  1. PROTONIX [Suspect]
     Dosage: INTRAVENOUS
     Route: 042

REACTIONS (2)
  - INFUSION SITE SWELLING [None]
  - INJECTION SITE EXTRAVASATION [None]
